FAERS Safety Report 16596157 (Version 1)
Quarter: 2019Q3

REPORT INFORMATION
  Report Type: Spontaneous
  Country: CN (occurrence: CN)
  Receive Date: 20190719
  Receipt Date: 20190719
  Transmission Date: 20191004
  Serious: Yes (Hospitalization)
  Sender: FDA-Public Use
  Company Number: CN-ASTRAZENECA-2019SE99585

PATIENT
  Age: 45 Year
  Sex: Female
  Weight: 61.5 kg

DRUGS (1)
  1. SYMBICORT [Suspect]
     Active Substance: BUDESONIDE\FORMOTEROL FUMARATE DIHYDRATE
     Indication: ASTHMA
     Dosage: 120 DOSES, BID ONE INHALATION EACH MORNING AND EVENING UNKNOWN
     Route: 055

REACTIONS (7)
  - Device issue [Unknown]
  - Bronchitis [Unknown]
  - Infection [Unknown]
  - Lung disorder [Recovering/Resolving]
  - Chest discomfort [Recovering/Resolving]
  - Discomfort [Recovering/Resolving]
  - Drug ineffective [Unknown]

NARRATIVE: CASE EVENT DATE: 201906
